FAERS Safety Report 8018970-1 (Version None)
Quarter: 2012Q1

REPORT INFORMATION
  Report Type: 
  Country: None (occurrence: None)
  Receive Date: 20120103
  Receipt Date: 20111213
  Transmission Date: 20120608
  Serious: Yes (Other)
  Sender: FDA-Public Use
  Company Number: US-PFIZER INC-2011317498

PATIENT
  Sex: Female
  Weight: 63.492 kg

DRUGS (3)
  1. LYRICA [Suspect]
     Indication: NEURALGIA
     Dosage: 75 MG, 3X/DAY
     Route: 048
     Dates: start: 20111210, end: 20111212
  2. LEXAPRO [Concomitant]
     Dosage: UNK
  3. ESTRADIOL [Concomitant]
     Dosage: 3 MG

REACTIONS (4)
  - SWOLLEN TONGUE [None]
  - DIZZINESS [None]
  - OEDEMA PERIPHERAL [None]
  - FEELING ABNORMAL [None]
